FAERS Safety Report 24130138 (Version 4)
Quarter: 2024Q3

REPORT INFORMATION
  Report Type: Spontaneous
  Country: CZ (occurrence: CZ)
  Receive Date: 20240724
  Receipt Date: 20240913
  Transmission Date: 20241016
  Serious: Yes (Other)
  Sender: GLAXOSMITHKLINE
  Company Number: None

PATIENT

DRUGS (2)
  1. LAMICTAL [Suspect]
     Active Substance: LAMOTRIGINE
     Indication: Epilepsy
     Dosage: UNK 200 2X( IN PREGNANCY 300 2X)
     Route: 064
     Dates: start: 2023
  2. KEPPRA [Suspect]
     Active Substance: LEVETIRACETAM
     Indication: Epilepsy
     Dosage: UNK 1000-0-1000 (IN PREGNANCY 1500 2X)
     Route: 064
     Dates: start: 2023

REACTIONS (2)
  - Laboratory test abnormal [Unknown]
  - Foetal exposure during pregnancy [Unknown]
